FAERS Safety Report 18646652 (Version 1)
Quarter: 2020Q4

REPORT INFORMATION
  Report Type: Other
  Country: US (occurrence: US)
  Receive Date: 20201221
  Receipt Date: 20201221
  Transmission Date: 20210114
  Serious: No
  Sender: FDA-Public Use
  Company Number: US-ACORDA-ACO_167054_2020

PATIENT
  Sex: Male

DRUGS (3)
  1. CARBIDOPA/LEVODOPA [Suspect]
     Active Substance: CARBIDOPA\LEVODOPA
     Indication: PRODUCT USED FOR UNKNOWN INDICATION
     Dosage: 3-4 TIMES PER DAY
     Route: 065
  2. INBRIJA [Suspect]
     Active Substance: LEVODOPA
     Indication: ON AND OFF PHENOMENON
     Dosage: 84 MILLIGRAM, AS NEEDED, NOT TO EXCEED 5 DOSES PER DAY
  3. INBRIJA [Suspect]
     Active Substance: LEVODOPA
     Indication: PARKINSON^S DISEASE

REACTIONS (9)
  - Choking [Unknown]
  - Musculoskeletal stiffness [Recovering/Resolving]
  - Dizziness [Unknown]
  - Drug ineffective [Unknown]
  - Urinary incontinence [Unknown]
  - Illness [Unknown]
  - Condition aggravated [Unknown]
  - Physical assault [Unknown]
  - Hallucination [Unknown]
